FAERS Safety Report 6674626-9 (Version None)
Quarter: 2010Q2

REPORT INFORMATION
  Report Type: 
  Country: None (occurrence: None)
  Receive Date: 20100409
  Receipt Date: 20100407
  Transmission Date: 20101027
  Serious: Yes (Death)
  Sender: FDA-Public Use
  Company Number: IT-ROCHE-695712

PATIENT
  Sex: Female

DRUGS (3)
  1. AVASTIN [Suspect]
     Indication: LUNG ADENOCARCINOMA METASTATIC
     Dosage: FREQUENCY REPORTED AS CYCLE
     Route: 042
     Dates: start: 20100323, end: 20100323
  2. XELODA [Concomitant]
     Indication: DRUG USE FOR UNKNOWN INDICATION
     Route: 048
  3. CYCLOPHOSPHAMIDE [Concomitant]
     Dosage: DRUG NAME REPORTED AS CYCLOPHOSPHAMIDE/ENDOXAN BAXTER
     Route: 048

REACTIONS (1)
  - LUNG ADENOCARCINOMA METASTATIC [None]
